APPROVED DRUG PRODUCT: METHYLERGONOVINE MALEATE
Active Ingredient: METHYLERGONOVINE MALEATE
Strength: 0.2MG
Dosage Form/Route: TABLET;ORAL
Application: A210424 | Product #001 | TE Code: AB
Applicant: GRANULES PHARMACEUTICALS INC
Approved: May 15, 2018 | RLD: No | RS: No | Type: RX